FAERS Safety Report 5036990-6 (Version None)
Quarter: 2006Q2

REPORT INFORMATION
  Report Type: 
  Country: None (occurrence: None)
  Receive Date: 20060601
  Receipt Date: 20060212
  Transmission Date: 20061013
  Serious: No
  Sender: FDA-Public Use
  Company Number: 2006PV008596

PATIENT
  Age: 69 Year
  Sex: Female

DRUGS (9)
  1. BYETTA [Suspect]
     Indication: DIABETES MELLITUS NON-INSULIN-DEPENDENT
     Dosage: 10 MCG;BID;SC
     Route: 058
     Dates: start: 20051101
  2. AVELOX [Suspect]
     Dosage: QD;PO
     Route: 048
     Dates: start: 20060210
  3. LANTUS [Concomitant]
  4. PRINIVIL [Concomitant]
  5. METAGLIP [Concomitant]
  6. ASPIRIN [Concomitant]
  7. ZOCOR [Concomitant]
  8. PLAVIX [Concomitant]
  9. TOPROL-XL [Concomitant]

REACTIONS (5)
  - BRONCHITIS [None]
  - COUGH [None]
  - PALPITATIONS [None]
  - RESPIRATORY TRACT CONGESTION [None]
  - SKIN ODOUR ABNORMAL [None]
